FAERS Safety Report 4706410-7 (Version None)
Quarter: 2005Q2

REPORT INFORMATION
  Report Type: 
  Country: None (occurrence: None)
  Receive Date: 20050629
  Receipt Date: 20050412
  Transmission Date: 20051028
  Serious: No
  Sender: FDA-Public Use
  Company Number: 05P-163-0297101-00

PATIENT
  Age: 43 Year
  Sex: Female
  Weight: 79.3795 kg

DRUGS (6)
  1. HUMIRA [Suspect]
     Indication: RHEUMATOID ARTHRITIS
     Dosage: 40 MG, 1 IN 2 WK, SUBCUTANEOUS
     Route: 058
     Dates: start: 20050328
  2. METHOTREXATE [Concomitant]
  3. FOLIC ACID [Concomitant]
  4. METHYLPREDNISOLONE [Concomitant]
  5. ATENOLOL [Concomitant]
  6. PAROXETINE HYDROCHLORIDE [Concomitant]

REACTIONS (1)
  - INJECTION SITE IRRITATION [None]
